FAERS Safety Report 9107050 (Version 1)
Quarter: 2013Q1

REPORT INFORMATION
  Report Type: Spontaneous
  Country: DE (occurrence: DE)
  Receive Date: 20130221
  Receipt Date: 20130221
  Transmission Date: 20140127
  Serious: Yes (Death, Hospitalization, Other)
  Sender: FDA-Public Use
  Company Number: DE-ELI_LILLY_AND_COMPANY-DE201302004070

PATIENT
  Sex: Female

DRUGS (3)
  1. FORSTEO [Suspect]
     Indication: OSTEOPOROSIS
     Dosage: UNK, QD
     Route: 058
     Dates: start: 20120511, end: 201211
  2. CORTISONE [Concomitant]
     Dosage: UNK
     Dates: start: 2004, end: 201211
  3. DEKRISTOL [Concomitant]
     Dosage: UNK
     Dates: start: 201207, end: 201211

REACTIONS (1)
  - Intestinal perforation [Fatal]
